FAERS Safety Report 10067363 (Version 1)
Quarter: 2014Q2

REPORT INFORMATION
  Report Type: Spontaneous
  Country: BG (occurrence: BG)
  Receive Date: 20140409
  Receipt Date: 20140409
  Transmission Date: 20141212
  Serious: Yes (Other)
  Sender: FDA-Public Use
  Company Number: BG-ROCHE-1380330

PATIENT
  Age: 64 Year
  Sex: Male

DRUGS (5)
  1. MABTHERA [Suspect]
     Indication: CHRONIC LYMPHOCYTIC LEUKAEMIA
     Dosage: ONCE EVERY 21 DAYS
     Route: 042
     Dates: start: 20140407, end: 20140407
  2. ENDOXAN [Concomitant]
     Indication: CHRONIC LYMPHOCYTIC LEUKAEMIA
     Dosage: ONCE EVERY 21 DAYS
     Route: 042
     Dates: start: 20140407, end: 20140407
  3. VINCRISTIN [Concomitant]
     Indication: CHRONIC LYMPHOCYTIC LEUKAEMIA
     Dosage: ONCE EVERY 21 DAYS
     Route: 042
     Dates: start: 20140407, end: 20140407
  4. METHYLPREDNISOLONE [Concomitant]
     Indication: CHRONIC LYMPHOCYTIC LEUKAEMIA
     Dosage: ONCE EVERY 21 DAYS
     Route: 042
     Dates: start: 20140407, end: 20140407
  5. AERIUS [Concomitant]
     Dosage: PRE MEDICATION
     Route: 065

REACTIONS (2)
  - Hypotonia [Recovering/Resolving]
  - Pruritus [Recovering/Resolving]
